FAERS Safety Report 24240236 (Version 1)
Quarter: 2024Q3

REPORT INFORMATION
  Report Type: Spontaneous
  Country: DK (occurrence: DK)
  Receive Date: 20240822
  Receipt Date: 20240822
  Transmission Date: 20241017
  Serious: Yes (Hospitalization, Other)
  Sender: MYLAN
  Company Number: None

PATIENT
  Age: 48 Year
  Sex: Female

DRUGS (2)
  1. METHYLPHENIDATE [Suspect]
     Active Substance: METHYLPHENIDATE
     Indication: Attention deficit hyperactivity disorder
     Dosage: UNK (PROLONGED-RELEASE TABLE)
     Route: 048
     Dates: start: 20240529, end: 20240805
  2. DULOXETINE HYDROCHLORIDE [Concomitant]
     Active Substance: DULOXETINE HYDROCHLORIDE
     Indication: Neuralgia
     Dosage: UNK
     Route: 065
     Dates: start: 2019

REACTIONS (5)
  - Acute psychosis [Recovered/Resolved]
  - Suicide attempt [Recovered/Resolved]
  - Suicidal behaviour [Recovered/Resolved]
  - Hallucination, visual [Recovered/Resolved]
  - Derealisation [Recovered/Resolved]

NARRATIVE: CASE EVENT DATE: 20240701
